FAERS Safety Report 10238702 (Version 1)
Quarter: 2014Q2

REPORT INFORMATION
  Report Type: Spontaneous
  Country: GB (occurrence: GB)
  Receive Date: 20140616
  Receipt Date: 20140616
  Transmission Date: 20141212
  Serious: Yes (Other)
  Sender: FDA-Public Use
  Company Number: GB-WATSON-2014-12467

PATIENT
  Age: 68 Year
  Sex: Male
  Weight: 95 kg

DRUGS (1)
  1. SIMVASTATIN (UNKNOWN) [Suspect]
     Indication: HYPERTENSION
     Dosage: 40 MG, UNKNOWN
     Route: 048
     Dates: start: 20140301, end: 20140519

REACTIONS (4)
  - Hepatitis [Recovering/Resolving]
  - Malaise [Recovering/Resolving]
  - Nausea [Recovering/Resolving]
  - Hypophagia [Recovering/Resolving]
